FAERS Safety Report 14753769 (Version 3)
Quarter: 2018Q2

REPORT INFORMATION
  Report Type: Spontaneous
  Country: DE (occurrence: DE)
  Receive Date: 20180412
  Receipt Date: 20180521
  Transmission Date: 20180711
  Serious: Yes (Other)
  Sender: FDA-Public Use
  Company Number: PHHY2018DE063947

PATIENT
  Age: 61 Year
  Sex: Male
  Weight: 85 kg

DRUGS (3)
  1. ELIQUIS [Suspect]
     Active Substance: APIXABAN
     Indication: CEREBROVASCULAR ACCIDENT PROPHYLAXIS
     Dosage: 5 MG, BID
     Route: 065
  2. TAMSULOSIN [Suspect]
     Active Substance: TAMSULOSIN
     Indication: PRODUCT USED FOR UNKNOWN INDICATION
     Dosage: UNK
     Route: 065
  3. CANDESARTAN. [Concomitant]
     Active Substance: CANDESARTAN
     Indication: PRODUCT USED FOR UNKNOWN INDICATION
     Dosage: 4 MG, QD
     Route: 065

REACTIONS (11)
  - Skin disorder [Unknown]
  - Pain [Unknown]
  - Memory impairment [Unknown]
  - Blood urine present [Unknown]
  - Pulpitis dental [Unknown]
  - Haemorrhage urinary tract [Unknown]
  - Gastric disorder [Unknown]
  - Dry skin [Unknown]
  - Pruritus [Unknown]
  - Coagulation time prolonged [Unknown]
  - Laceration [Unknown]
